FAERS Safety Report 4341206-X (Version None)
Quarter: 2004Q1

REPORT INFORMATION
  Report Type: 
  Country: None (occurrence: None)
  Receive Date: 20040329
  Receipt Date: 20040225
  Transmission Date: 20041129
  Serious: No
  Sender: FDA-Public Use
  Company Number: 04P-163-0251402-00

PATIENT
  Age: 47 Year
  Sex: Female
  Weight: 72.5755 kg

DRUGS (10)
  1. HUMIRA [Suspect]
     Indication: RHEUMATOID ARTHRITIS
     Dosage: 40 MG, 1 IN 2 WK, SUBCUTANEOUS
     Route: 058
     Dates: start: 20031201
  2. LEFLUNOMIDE [Concomitant]
  3. ROFECOXIB [Concomitant]
  4. LEVOTHYROXINE SODIUM [Concomitant]
  5. ALLEGRA-D [Concomitant]
  6. OMEPRAZOLE [Concomitant]
  7. ATORVASTATIN [Concomitant]
  8. CARISOPRODOL [Concomitant]
  9. COMBIVENT [Concomitant]
  10. NALOXONE [Concomitant]

REACTIONS (1)
  - DRUG EFFECT DECREASED [None]
